FAERS Safety Report 8161876-8 (Version None)
Quarter: 2012Q1

REPORT INFORMATION
  Report Type: 
  Country: None (occurrence: None)
  Receive Date: 20120224
  Receipt Date: 20110812
  Transmission Date: 20120608
  Serious: No
  Sender: FDA-Public Use
  Company Number: US-BRISTOL-MYERS SQUIBB COMPANY-15968035

PATIENT
  Age: 58 Year
  Sex: Female

DRUGS (4)
  1. BENAZEPRIL HYDROCHLORIDE [Concomitant]
  2. HUMALOG [Concomitant]
     Dosage: HUMALOG INSULIN PUMP
  3. PRAVASTATIN SODIUM [Concomitant]
  4. METFORMIN HCL [Suspect]

REACTIONS (2)
  - DIARRHOEA [None]
  - ABDOMINAL DISCOMFORT [None]
